FAERS Safety Report 9311749 (Version 1)
Quarter: 2013Q2

REPORT INFORMATION
  Report Type: Spontaneous
  Country: FR (occurrence: FR)
  Receive Date: 20130528
  Receipt Date: 20130528
  Transmission Date: 20140414
  Serious: Yes (Death)
  Sender: FDA-Public Use
  Company Number: FR-JNJFOC-20130510517

PATIENT
  Sex: 0

DRUGS (9)
  1. DOXORUBICIN [Suspect]
     Indication: ENTEROPATHY-ASSOCIATED T-CELL LYMPHOMA
     Route: 042
  2. CYCLOPHOSPHAMIDE [Suspect]
     Indication: ENTEROPATHY-ASSOCIATED T-CELL LYMPHOMA
     Route: 065
  3. VINDESINE [Suspect]
     Indication: ENTEROPATHY-ASSOCIATED T-CELL LYMPHOMA
     Route: 065
  4. BLEOMYCIN [Suspect]
     Indication: ENTEROPATHY-ASSOCIATED T-CELL LYMPHOMA
     Route: 065
  5. PREDNISONE [Suspect]
     Indication: ENTEROPATHY-ASSOCIATED T-CELL LYMPHOMA
     Route: 065
  6. ETOPOSIDE [Suspect]
     Indication: ENTEROPATHY-ASSOCIATED T-CELL LYMPHOMA
     Route: 065
  7. VINCRISTINE [Suspect]
     Indication: ENTEROPATHY-ASSOCIATED T-CELL LYMPHOMA
     Route: 065
  8. HYDROXY DAUNORUBICIN [Suspect]
     Indication: ENTEROPATHY-ASSOCIATED T-CELL LYMPHOMA
     Route: 065
  9. ONCOVIN [Suspect]
     Indication: ENTEROPATHY-ASSOCIATED T-CELL LYMPHOMA
     Route: 065

REACTIONS (8)
  - Enteropathy-associated T-cell lymphoma [Fatal]
  - Thrombosis [Fatal]
  - Malnutrition [Fatal]
  - Peritonitis [Fatal]
  - Infection [Fatal]
  - Neutropenia [Fatal]
  - Off label use [Unknown]
  - Malignant neoplasm progression [None]
